FAERS Safety Report 23296913 (Version 2)
Quarter: 2023Q4

REPORT INFORMATION
  Report Type: Spontaneous
  Country: KR (occurrence: KR)
  Receive Date: 20231214
  Receipt Date: 20231218
  Transmission Date: 20240110
  Serious: Yes (Other)
  Sender: FDA-Public Use
  Company Number: KR-SA-2023SA382967

PATIENT
  Age: 64 Year
  Sex: Male

DRUGS (6)
  1. DUPILUMAB [Suspect]
     Active Substance: DUPILUMAB
     Indication: Eczema
     Dosage: UNK
  2. DUPILUMAB [Suspect]
     Active Substance: DUPILUMAB
     Indication: Neurodermatitis
  3. METHOTREXATE [Concomitant]
     Active Substance: METHOTREXATE
     Indication: Eczema
     Route: 048
  4. METHOTREXATE [Concomitant]
     Active Substance: METHOTREXATE
     Indication: Neurodermatitis
  5. CYCLOSPORINE [Concomitant]
     Active Substance: CYCLOSPORINE
     Indication: Eczema
     Dosage: UNK
  6. CYCLOSPORINE [Concomitant]
     Active Substance: CYCLOSPORINE
     Indication: Neurodermatitis

REACTIONS (6)
  - Cutaneous T-cell lymphoma stage I [Unknown]
  - Erythema [Unknown]
  - Skin plaque [Unknown]
  - Papule [Unknown]
  - Parakeratosis [Unknown]
  - Abscess [Unknown]
